FAERS Safety Report 9725037 (Version 3)
Quarter: 2014Q1

REPORT INFORMATION
  Report Type: Spontaneous
  Country: AU (occurrence: AU)
  Receive Date: 20131203
  Receipt Date: 20140115
  Transmission Date: 20141002
  Serious: Yes (Hospitalization)
  Sender: FDA-Public Use
  Company Number: AU-BIOGENIDEC-2013BI115016

PATIENT
  Age: 69 Year
  Sex: Female

DRUGS (1)
  1. AVONEX [Suspect]
     Indication: MULTIPLE SCLEROSIS
     Route: 030
     Dates: start: 20130711, end: 201311

REACTIONS (5)
  - Volvulus [Not Recovered/Not Resolved]
  - Post procedural complication [Unknown]
  - Device issue [Unknown]
  - Feeling abnormal [Unknown]
  - Drug ineffective [Unknown]
